FAERS Safety Report 25211867 (Version 2)
Quarter: 2025Q2

REPORT INFORMATION
  Report Type: Spontaneous
  Country: US (occurrence: US)
  Receive Date: 20250418
  Receipt Date: 20250512
  Transmission Date: 20250717
  Serious: No
  Sender: CIPLA
  Company Number: US-CIPLA LTD.-2025US04355

PATIENT

DRUGS (2)
  1. BUDESONIDE [Suspect]
     Active Substance: BUDESONIDE
     Indication: Asthma
     Dosage: UNK, QOD (PRESCRIBED TO HER TO TAKE TWICE A DAY, BUT SHE WAS USING IT EVERY OTHER DAY BUT NOW SHE ST
     Route: 065
     Dates: start: 202411
  2. BUDESONIDE [Suspect]
     Active Substance: BUDESONIDE
     Route: 065
     Dates: start: 2025

REACTIONS (3)
  - Inappropriate schedule of product administration [Unknown]
  - Product with quality issue administered [Unknown]
  - Liquid product physical issue [Unknown]
